FAERS Safety Report 24357458 (Version 1)
Quarter: 2024Q3

REPORT INFORMATION
  Report Type: Spontaneous
  Country: US (occurrence: None)
  Receive Date: 20240923
  Receipt Date: 20240923
  Transmission Date: 20241017
  Serious: Yes (Hospitalization)
  Sender: Public
  Company Number: None

PATIENT
  Age: 62 Year
  Sex: Female
  Weight: 73.7 kg

DRUGS (5)
  1. OZEMPIC [Suspect]
     Active Substance: SEMAGLUTIDE
     Indication: Diabetes mellitus
  2. METFORMIN [Suspect]
     Active Substance: METFORMIN HYDROCHLORIDE
  3. JARDIANCE [Suspect]
     Active Substance: EMPAGLIFLOZIN
  4. LISINOPRIL [Suspect]
     Active Substance: LISINOPRIL
  5. METOPROLOL TARTRATE [Suspect]
     Active Substance: METOPROLOL TARTRATE

REACTIONS (6)
  - Dehydration [None]
  - Hypotension [None]
  - Metabolic acidosis [None]
  - Acute kidney injury [None]
  - Product prescribing issue [None]
  - Incorrect dose administered [None]

NARRATIVE: CASE EVENT DATE: 20240909
